FAERS Safety Report 5873369-9 (Version None)
Quarter: 2008Q3

REPORT INFORMATION
  Report Type: 
  Country: None (occurrence: None)
  Receive Date: 20080829
  Receipt Date: 20080717
  Transmission Date: 20090109
  Serious: Yes (Hospitalization, Disabling)
  Sender: FDA-Public Use
  Company Number: 2008-00766FE

PATIENT
  Age: 34 Year
  Sex: Female

DRUGS (3)
  1. MENOTROPHIN () (MENOTROPHIN) [Suspect]
     Indication: OVULATION INDUCTION
  2. CHORIONIC GONADOTROPIN(CHORAGON) (CHORIONIC GONADOTROP HIN) [Suspect]
     Indication: OVULATION INDUCTION
     Dosage: IM
     Route: 030
  3. GONADOTROPIN RELEASING HORMONE AGONIST () (TRIPTORELIN ACETATE) [Suspect]
     Indication: OVULATION INDUCTION

REACTIONS (6)
  - ABDOMINAL DISTENSION [None]
  - BLINDNESS UNILATERAL [None]
  - BLOOD PRESSURE INCREASED [None]
  - CAROTID ARTERY THROMBOSIS [None]
  - OVARIAN HYPERSTIMULATION SYNDROME [None]
  - RETINAL ARTERY OCCLUSION [None]
